FAERS Safety Report 25946040 (Version 1)
Quarter: 2025Q4

REPORT INFORMATION
  Report Type: Spontaneous
  Country: US (occurrence: US)
  Receive Date: 20251021
  Receipt Date: 20251021
  Transmission Date: 20260118
  Serious: No
  Sender: ELI LILLY AND COMPANY
  Company Number: US-ELI_LILLY_AND_COMPANY-US202510018470

PATIENT
  Age: 35 Year
  Sex: Male

DRUGS (1)
  1. EBGLYSS [Suspect]
     Active Substance: LEBRIKIZUMAB-LBKZ
     Indication: Dermatitis atopic
     Dosage: UNK, INITIAL LOADING DOSE
     Route: 065

REACTIONS (2)
  - Irritable bowel syndrome [Unknown]
  - Diarrhoea [Recovered/Resolved]

NARRATIVE: CASE EVENT DATE: 20250818
